FAERS Safety Report 11158263 (Version 1)
Quarter: 2015Q2

REPORT INFORMATION
  Report Type: Spontaneous
  Country: US (occurrence: None)
  Receive Date: 20150602
  Receipt Date: 20150602
  Transmission Date: 20150821
  Serious: Yes (Hospitalization)
  Sender: FDA-Public Use
  Company Number: None

PATIENT
  Age: 46 Year
  Sex: Male

DRUGS (3)
  1. DIVALPROEX [Suspect]
     Active Substance: DIVALPROEX SODIUM
     Indication: BIPOLAR I DISORDER
     Route: 048
     Dates: start: 20080311, end: 20140426
  2. DIAZEPAM. [Suspect]
     Active Substance: DIAZEPAM
     Dosage: MG BID PO
     Route: 048
     Dates: start: 20080124, end: 20141218
  3. DIVALPROEX [Suspect]
     Active Substance: DIVALPROEX SODIUM
     Indication: MANIA
     Route: 048
     Dates: start: 20080311, end: 20140426

REACTIONS (5)
  - Dizziness [None]
  - Sedation [None]
  - Hyperammonaemia [None]
  - Encephalopathy [None]
  - Confusional state [None]

NARRATIVE: CASE EVENT DATE: 20140426
